FAERS Safety Report 16508143 (Version 2)
Quarter: 2019Q3

REPORT INFORMATION
  Report Type: Report from Study
  Country: ES (occurrence: ES)
  Receive Date: 20190701
  Receipt Date: 20190719
  Transmission Date: 20191004
  Serious: Yes (Hospitalization, Other)
  Sender: FDA-Public Use
  Company Number: ES-SHIRE-ES201908708

PATIENT

DRUGS (7)
  1. MOTOSOL [Concomitant]
     Active Substance: AMBROXOL
     Indication: PRODUCT USED FOR UNKNOWN INDICATION
  2. HIBOR [Concomitant]
     Indication: PRODUCT USED FOR UNKNOWN INDICATION
  3. TEDUGLUTIDE [Suspect]
     Active Substance: TEDUGLUTIDE
     Indication: SHORT-BOWEL SYNDROME
     Dosage: 0.007 UNITS UNKNOWN, 1X/DAY:QD
     Route: 058
     Dates: start: 20190307
  4. PULMICORT TURBUHALER [Concomitant]
     Active Substance: BUDESONIDE
     Indication: PRODUCT USED FOR UNKNOWN INDICATION
  5. TEDUGLUTIDE [Suspect]
     Active Substance: TEDUGLUTIDE
     Indication: CONGENITAL MEGACOLON
     Dosage: 0.007 UNITS UNKNOWN, 1X/DAY:QD
     Route: 058
     Dates: start: 20190307
  6. OATMEAL. [Concomitant]
     Active Substance: OATMEAL
     Indication: PRODUCT USED FOR UNKNOWN INDICATION
  7. SPIRONOLACTONE. [Concomitant]
     Active Substance: SPIRONOLACTONE
     Indication: POLYURIA

REACTIONS (35)
  - Stoma complication [Not Recovered/Not Resolved]
  - Appetite disorder [Not Recovered/Not Resolved]
  - Thirst decreased [Not Recovered/Not Resolved]
  - Weight decreased [Not Recovered/Not Resolved]
  - Pain [Unknown]
  - Dry skin [Recovered/Resolved]
  - Abnormal faeces [Not Recovered/Not Resolved]
  - Skin discolouration [Not Recovered/Not Resolved]
  - Off label use [Unknown]
  - Device issue [Not Recovered/Not Resolved]
  - Coagulopathy [Not Recovered/Not Resolved]
  - Anal incontinence [Recovered/Resolved]
  - Granuloma [Not Recovered/Not Resolved]
  - Red blood cell sedimentation rate decreased [Not Recovered/Not Resolved]
  - Psychomotor hyperactivity [Not Recovered/Not Resolved]
  - Frequent bowel movements [Recovering/Resolving]
  - Food allergy [Recovered/Resolved]
  - Necrotising colitis [Unknown]
  - Secretion discharge [Not Recovered/Not Resolved]
  - Injection site haematoma [Not Recovered/Not Resolved]
  - Hospitalisation [Recovered/Resolved]
  - Septic shock [Unknown]
  - Device breakage [Unknown]
  - Eyelid rash [Recovering/Resolving]
  - Faeces discoloured [Not Recovered/Not Resolved]
  - Thermal burn [Not Recovered/Not Resolved]
  - Catheter site related reaction [Not Recovered/Not Resolved]
  - Cough [Recovered/Resolved]
  - Polyuria [Recovered/Resolved]
  - Inflammation [Recovering/Resolving]
  - Lividity [Recovering/Resolving]
  - Stoma complication [Recovered/Resolved]
  - Liver disorder [Not Recovered/Not Resolved]
  - Injection site erythema [Recovered/Resolved]
  - Rash [Unknown]

NARRATIVE: CASE EVENT DATE: 20190312
